FAERS Safety Report 6827562-9 (Version None)
Quarter: 2010Q3

REPORT INFORMATION
  Report Type: 
  Country: None (occurrence: None)
  Receive Date: 20100709
  Receipt Date: 20070120
  Transmission Date: 20110219
  Serious: No
  Sender: FDA-Public Use
  Company Number: US-PFIZER INC-2007006107

PATIENT
  Sex: Male
  Weight: 74.39 kg

DRUGS (5)
  1. CHANTIX [Suspect]
     Indication: SMOKING CESSATION THERAPY
     Route: 048
     Dates: start: 20070115
  2. AVAPRO [Concomitant]
  3. PAXIL [Concomitant]
  4. ACETYLSALICYLIC ACID [Concomitant]
  5. VITAMINS [Concomitant]

REACTIONS (1)
  - FATIGUE [None]
